FAERS Safety Report 11812911 (Version 2)
Quarter: 2016Q1

REPORT INFORMATION
  Report Type: Spontaneous
  Country: JP (occurrence: JP)
  Receive Date: 20151209
  Receipt Date: 20160127
  Transmission Date: 20160525
  Serious: Yes (Death, Other)
  Sender: FDA-Public Use
  Company Number: JP-TAKEDA-2015TJP023108

PATIENT
  Age: 77 Year
  Sex: Male

DRUGS (8)
  1. ALOSITOL [Concomitant]
     Active Substance: ALLOPURINOL
     Dosage: 100 MG, BID
     Route: 048
  2. LOCHOL                             /01224502/ [Concomitant]
     Active Substance: FLUVASTATIN SODIUM
     Dosage: 30 MG, QD
     Route: 048
  3. RENIVACE [Concomitant]
     Active Substance: ENALAPRIL
     Dosage: 2.5 MG, QD
     Route: 048
  4. FLIVAS [Concomitant]
     Active Substance: NAFTOPIDIL
     Dosage: 50 MG, QD
     Route: 048
  5. ALTAT [Concomitant]
     Dosage: 75 MG, QD
     Route: 048
  6. BAYMYCARD [Concomitant]
     Dosage: 5 MG, QD
     Route: 048
  7. ACTOS [Suspect]
     Active Substance: PIOGLITAZONE HYDROCHLORIDE
     Indication: TYPE 2 DIABETES MELLITUS
     Dosage: 30 MG, QD
     Route: 048
  8. GLUCOBAY [Concomitant]
     Active Substance: ACARBOSE
     Dosage: 100 MG, TID
     Route: 048

REACTIONS (1)
  - Bladder cancer [Fatal]
